FAERS Safety Report 7655407-6 (Version None)
Quarter: 2011Q3

REPORT INFORMATION
  Report Type: 
  Country: None (occurrence: None)
  Receive Date: 20110729
  Receipt Date: 20110715
  Transmission Date: 20111222
  Serious: Yes (Hospitalization)
  Sender: FDA-Public Use
  Company Number: 1000020378

PATIENT
  Age: 38 Year
  Sex: Female

DRUGS (10)
  1. ESCITALOPRAM [Suspect]
     Indication: DEPRESSION
     Dosage: 20 MG (20 MG, 1 IN 1 D), ORAL, 25 MG (25 MG, 1 IN 1 D), ORAL
     Route: 048
     Dates: start: 20100922, end: 20101014
  2. ESCITALOPRAM [Suspect]
     Indication: DEPRESSION
     Dosage: 20 MG (20 MG, 1 IN 1 D), ORAL, 25 MG (25 MG, 1 IN 1 D), ORAL
     Route: 048
     Dates: start: 20101015
  3. SEROQUEL [Suspect]
     Indication: SCHIZOPHRENIA
     Dosage: 25-200 MG, ORAL
     Route: 048
     Dates: start: 20100922
  4. METHADONE HYDROCHLORIDE [Suspect]
     Indication: DRUG DEPENDENCE
     Dosage: SEE IMAGE
     Route: 048
     Dates: start: 20100922, end: 20100923
  5. METHADONE HYDROCHLORIDE [Suspect]
     Indication: DRUG DEPENDENCE
     Dosage: SEE IMAGE
     Route: 048
     Dates: start: 20100924, end: 20100927
  6. METHADONE HYDROCHLORIDE [Suspect]
     Indication: DRUG DEPENDENCE
     Dosage: SEE IMAGE
     Route: 048
     Dates: start: 20100928, end: 20101006
  7. METHADONE HYDROCHLORIDE [Suspect]
     Indication: DRUG DEPENDENCE
     Dosage: SEE IMAGE
     Route: 048
     Dates: start: 20101007
  8. ABILIFY [Suspect]
     Indication: SCHIZOPHRENIA
     Dosage: 7.5 MG (7.5 MG, 1 IN 1 D), ORAL, 5 MG (5 MG, 1 IN 1 D), ORAL, 2.5 MG (2.5 MG, 1 IN 1 D), ORAL
     Route: 048
     Dates: start: 20100922, end: 20100927
  9. ABILIFY [Suspect]
     Indication: SCHIZOPHRENIA
     Dosage: 7.5 MG (7.5 MG, 1 IN 1 D), ORAL, 5 MG (5 MG, 1 IN 1 D), ORAL, 2.5 MG (2.5 MG, 1 IN 1 D), ORAL
     Route: 048
     Dates: start: 20101001, end: 20101008
  10. ABILIFY [Suspect]
     Indication: SCHIZOPHRENIA
     Dosage: 7.5 MG (7.5 MG, 1 IN 1 D), ORAL, 5 MG (5 MG, 1 IN 1 D), ORAL, 2.5 MG (2.5 MG, 1 IN 1 D), ORAL
     Route: 048
     Dates: start: 20100928, end: 20100930

REACTIONS (12)
  - DRUG WITHDRAWAL SYNDROME [None]
  - AKATHISIA [None]
  - BACTERIURIA [None]
  - NITRITE URINE PRESENT [None]
  - DRUG INTERACTION [None]
  - OVERDOSE [None]
  - BLOOD THYROID STIMULATING HORMONE INCREASED [None]
  - BLOOD CHOLESTEROL INCREASED [None]
  - HIGH DENSITY LIPOPROTEIN INCREASED [None]
  - URINE ANALYSIS ABNORMAL [None]
  - AGITATION [None]
  - TOTAL CHOLESTEROL/HDL RATIO DECREASED [None]
